FAERS Safety Report 10355314 (Version 4)
Quarter: 2014Q4

REPORT INFORMATION
  Report Type: Spontaneous
  Country: GB (occurrence: GB)
  Receive Date: 20140731
  Receipt Date: 20141114
  Transmission Date: 20150528
  Serious: Yes (Other)
  Sender: FDA-Public Use
  Company Number: ALCN2014GB004338

PATIENT
  Age: 78 Year
  Sex: Female
  Weight: 53.98 kg

DRUGS (6)
  1. BISOPROLOL [Concomitant]
     Active Substance: BISOPROLOL
     Indication: CARDIAC DISORDER
     Dosage: UNK
     Dates: start: 20121102
  2. RAMIPRIL. [Concomitant]
     Active Substance: RAMIPRIL
     Indication: HYPERTENSION
     Dosage: UNK
     Dates: start: 20121102
  3. LIDOCAINE. [Concomitant]
     Active Substance: LIDOCAINE
     Indication: ANALGESIC THERAPY
     Dosage: UNK
     Dates: start: 20121102
  4. MAXITROL [Suspect]
     Active Substance: DEXAMETHASONE\NEOMYCIN SULFATE\POLYMYXIN B SULFATE
     Indication: DRY EYE
     Dosage: 1 GTT, QID
     Route: 047
     Dates: start: 20140602, end: 20140605
  5. GABAPENTIN. [Concomitant]
     Active Substance: GABAPENTIN
     Indication: HERPES ZOSTER
     Dosage: UNK
     Dates: start: 20121102
  6. PARACETAMOL [Concomitant]
     Active Substance: ACETAMINOPHEN
     Indication: CARDIAC DISORDER
     Dosage: UNK
     Dates: start: 20121102

REACTIONS (4)
  - Visual acuity reduced [Recovering/Resolving]
  - Eye burns [Recovering/Resolving]
  - Eye pain [Recovering/Resolving]
  - Blindness transient [Recovering/Resolving]

NARRATIVE: CASE EVENT DATE: 20140605
